FAERS Safety Report 9437069 (Version 4)
Quarter: 2013Q4

REPORT INFORMATION
  Report Type: Report from Study
  Country: US (occurrence: US)
  Receive Date: 20130802
  Receipt Date: 20131206
  Transmission Date: 20140711
  Serious: Yes (Hospitalization, Other)
  Sender: FDA-Public Use
  Company Number: US-ASTELLAS-2013US008056

PATIENT
  Age: 51 Year
  Sex: Female

DRUGS (16)
  1. ERLOTINIB TABLET [Suspect]
     Indication: LUNG CANCER METASTATIC
     Dosage: UNK
     Route: 065
     Dates: start: 20130521
  2. AVASTIN /01555201/ [Suspect]
     Indication: NON-SMALL CELL LUNG CANCER
     Dosage: 531 MG, Q3W
     Route: 041
     Dates: start: 20130521
  3. AVASTIN /01555201/ [Suspect]
     Indication: METASTASES TO LIVER
  4. ZANTAC [Concomitant]
     Indication: PRODUCT USED FOR UNKNOWN INDICATION
     Dosage: 50 MG, UNKNOWN/D
     Route: 042
  5. DIPHENHYDRAMINE [Concomitant]
     Indication: PRODUCT USED FOR UNKNOWN INDICATION
     Dosage: UNK
     Route: 065
  6. CLINDAMYCIN PHOSPHATE [Concomitant]
     Indication: PRODUCT USED FOR UNKNOWN INDICATION
     Dosage: 2 IN 1 DAY
     Route: 065
  7. LACTULOSE [Concomitant]
     Indication: PRODUCT USED FOR UNKNOWN INDICATION
     Dosage: 10G/15 ML,UNK
     Route: 065
  8. ZOFRAN                             /00955301/ [Concomitant]
     Indication: PRODUCT USED FOR UNKNOWN INDICATION
     Dosage: 24 MG, 4 MG IN 8 HRS
     Route: 048
  9. TYLENOL                            /00020001/ [Concomitant]
     Indication: PRODUCT USED FOR UNKNOWN INDICATION
     Dosage: 500 MG, 1 IN 6 HRS
     Route: 048
  10. AMBIEN [Concomitant]
     Indication: PRODUCT USED FOR UNKNOWN INDICATION
     Dosage: 5 MG, QHS
     Route: 048
  11. HYDROCORTISONE [Concomitant]
     Indication: PRODUCT USED FOR UNKNOWN INDICATION
     Dosage: 2.5 %, BID
     Route: 065
  12. COLACE [Concomitant]
     Indication: PRODUCT USED FOR UNKNOWN INDICATION
     Dosage: 100 MG, 3 IN 1 DAY
     Route: 048
  13. CALCIUM                            /00060701/ [Concomitant]
     Indication: PRODUCT USED FOR UNKNOWN INDICATION
     Dosage: UNK
     Route: 065
  14. DILAUDID [Concomitant]
     Indication: PRODUCT USED FOR UNKNOWN INDICATION
     Dosage: 2 MG, 1 IN 4 HR
     Route: 048
  15. DEXAMETHASONE [Concomitant]
     Indication: PRODUCT USED FOR UNKNOWN INDICATION
     Dosage: 4 MG, Q6 HOURS
     Route: 048
  16. MS CONTIN [Concomitant]
     Indication: PRODUCT USED FOR UNKNOWN INDICATION
     Dosage: 30 MG, UID/QD
     Route: 048

REACTIONS (25)
  - Blood alkaline phosphatase abnormal [Unknown]
  - Atelectasis [Unknown]
  - Adenocarcinoma [Unknown]
  - Pleural effusion [Unknown]
  - Pleural effusion [Unknown]
  - Malignant neoplasm of thorax [Unknown]
  - Metastases to spine [Unknown]
  - Metastases to central nervous system [Unknown]
  - Spinal cord compression [Unknown]
  - Spinal cord compression [Unknown]
  - Malignant neoplasm progression [Unknown]
  - Metastases to liver [Unknown]
  - Bone pain [Unknown]
  - Osteoporosis [Unknown]
  - Constipation [Unknown]
  - Rhinorrhoea [Unknown]
  - Abasia [Unknown]
  - Cough [Recovered/Resolved]
  - Rash [Unknown]
  - Acne [Unknown]
  - Fatigue [Unknown]
  - Dyspnoea [Unknown]
  - Muscular weakness [Unknown]
  - Back pain [Unknown]
  - Dermatitis acneiform [Unknown]
